FAERS Safety Report 10151445 (Version 1)
Quarter: 2014Q2

REPORT INFORMATION
  Report Type: Spontaneous
  Country: US (occurrence: US)
  Receive Date: 20140504
  Receipt Date: 20140504
  Transmission Date: 20141212
  Serious: Yes (Life-Threatening, Hospitalization)
  Sender: FDA-Public Use
  Company Number: US-BRISTOL-MYERS SQUIBB COMPANY-20669768

PATIENT
  Age: 62 Year
  Sex: Female

DRUGS (3)
  1. ABILIFY [Suspect]
     Dosage: DOSE:2.5 MG
     Dates: start: 2013
  2. DEPAKOTE [Concomitant]
  3. VALSARTAN [Concomitant]

REACTIONS (2)
  - Loss of consciousness [Unknown]
  - Convulsion [Unknown]
